FAERS Safety Report 4402210-6 (Version None)
Quarter: 2004Q3

REPORT INFORMATION
  Report Type: 
  Country: None (occurrence: None)
  Receive Date: 20040720
  Receipt Date: 20030929
  Transmission Date: 20050211
  Serious: Yes (Other)
  Sender: FDA-Public Use
  Company Number: US-MERCK-0310USA00104

PATIENT
  Age: 71 Year
  Sex: Female
  Weight: 61 kg

DRUGS (4)
  1. PROPULSID [Concomitant]
     Route: 065
  2. ESTROGENS (UNSPECIFIED) [Concomitant]
     Indication: HORMONE REPLACEMENT THERAPY
     Route: 065
  3. VIOXX [Suspect]
     Indication: PAIN
     Route: 048
     Dates: start: 20000101
  4. VIOXX [Suspect]
     Indication: GASTRIC DISORDER
     Route: 048
     Dates: start: 20000101

REACTIONS (13)
  - BLOOD PRESSURE INCREASED [None]
  - CONVULSION [None]
  - CYSTITIS [None]
  - DEPRESSION [None]
  - EMOTIONAL DISTRESS [None]
  - HERPES ZOSTER [None]
  - INJURY [None]
  - INTERVERTEBRAL DISC DISPLACEMENT [None]
  - NERVOUSNESS [None]
  - STOMACH DISCOMFORT [None]
  - THYROID DISORDER [None]
  - UTERINE CANCER [None]
  - WEIGHT DECREASED [None]
